FAERS Safety Report 6668301-4 (Version None)
Quarter: 2010Q2

REPORT INFORMATION
  Report Type: 
  Country: None (occurrence: None)
  Receive Date: 20100406
  Receipt Date: 20100325
  Transmission Date: 20101027
  Serious: Yes (Hospitalization)
  Sender: FDA-Public Use
  Company Number: DE-GENZYME-CLOF-1000890

PATIENT
  Sex: Female
  Weight: 32 kg

DRUGS (4)
  1. EVOLTRA [Suspect]
     Indication: ACUTE LYMPHOCYTIC LEUKAEMIA
     Dosage: 58 MG, QD
     Route: 042
     Dates: start: 20100105, end: 20100106
  2. EVOLTRA [Suspect]
     Dosage: 58 MG, QD
     Route: 042
     Dates: start: 20100111, end: 20100112
  3. DEXAMETHASONE TAB [Concomitant]
     Indication: DRUG USE FOR UNKNOWN INDICATION
     Dosage: 7 MG, TID
     Route: 065
     Dates: start: 20100105, end: 20100108
  4. DEXAMETHASONE TAB [Concomitant]
     Dosage: 7 MG, TID
     Route: 065
     Dates: start: 20100111, end: 20100112

REACTIONS (2)
  - INAPPROPRIATE ANTIDIURETIC HORMONE SECRETION [None]
  - MUSCLE SPASMS [None]
